FAERS Safety Report 24153983 (Version 1)
Quarter: 2024Q3

REPORT INFORMATION
  Report Type: Spontaneous
  Country: FR (occurrence: FR)
  Receive Date: 20240730
  Receipt Date: 20240730
  Transmission Date: 20241016
  Serious: Yes (Death, Other)
  Sender: PURDUE
  Company Number: FR-BIOGARAN-B24001210

PATIENT
  Age: 55 Year
  Sex: Male

DRUGS (4)
  1. MORPHINE SULFATE [Suspect]
     Active Substance: MORPHINE SULFATE
     Indication: Product used for unknown indication
     Dosage: UNK
     Route: 065
  2. TADALAFIL [Suspect]
     Active Substance: TADALAFIL
     Indication: Product used for unknown indication
     Dosage: UNKNOWN
     Route: 065
  3. OXYBATE [Suspect]
     Active Substance: OXYBATE
     Indication: Product used for unknown indication
     Dosage: UNKNOWN
     Route: 065
  4. CODEINE [Suspect]
     Active Substance: CODEINE
     Indication: Product used for unknown indication
     Dosage: UNKNOWN
     Route: 065

REACTIONS (5)
  - Loss of consciousness [Fatal]
  - Intentional product misuse [Fatal]
  - Dyspnoea [Fatal]
  - Intentional product use issue [Fatal]
  - Drug abuse [Fatal]
